FAERS Safety Report 5069549-5 (Version None)
Quarter: 2006Q3

REPORT INFORMATION
  Report Type: 
  Country: None (occurrence: None)
  Receive Date: 20060731
  Receipt Date: 20060721
  Transmission Date: 20061208
  Serious: No
  Sender: FDA-Public Use
  Company Number: 222941

PATIENT
  Age: 76 Year
  Sex: Male

DRUGS (4)
  1. RITUXAN [Suspect]
     Indication: DIFFUSE LARGE B-CELL LYMPHOMA
     Dosage: 570 MG, INTRAVENOUS
     Route: 042
     Dates: start: 20041007, end: 20041105
  2. DEXAMETHASONE [Concomitant]
  3. ETOPOSIDE [Concomitant]
  4. IFOSFAMIDE [Concomitant]

REACTIONS (1)
  - CONSTIPATION [None]
